FAERS Safety Report 8607201 (Version 3)
Quarter: 2014Q1

REPORT INFORMATION
  Report Type: Spontaneous
  Country: US (occurrence: US)
  Receive Date: 20120611
  Receipt Date: 20140116
  Transmission Date: 20141002
  Serious: No
  Sender: FDA-Public Use
  Company Number: US-ASTRAZENECA-2012SE34819

PATIENT
  Age: 62 Year
  Sex: Male
  Weight: 90.7 kg

DRUGS (18)
  1. NEXIUM [Suspect]
     Indication: GASTROOESOPHAGEAL REFLUX DISEASE
     Route: 048
     Dates: start: 2002, end: 2010
  2. NEXIUM [Suspect]
     Indication: GASTROOESOPHAGEAL REFLUX DISEASE
     Route: 048
     Dates: start: 20080201
  3. DEXILANT [Concomitant]
  4. ZANTAC [Concomitant]
     Dates: start: 20110503, end: 20120831
  5. CLYCLOBENZAPRINE [Concomitant]
  6. LEADER CALCIUM [Concomitant]
     Indication: BONE DISORDER
  7. VITAMIN D [Concomitant]
     Indication: BONE DISORDER
  8. ALENDRONATE [Concomitant]
     Indication: BONE DISORDER
  9. NAPROXEN [Concomitant]
     Indication: BONE DISORDER
  10. NAPROXEN [Concomitant]
     Indication: BACK PAIN
  11. NAPROXEN [Concomitant]
     Indication: ARTHRALGIA
  12. CRESTOR [Concomitant]
     Indication: BLOOD CHOLESTEROL
  13. LEVOTHROXINE [Concomitant]
     Indication: THYROID DISORDER
  14. FINASTERIDE [Concomitant]
     Indication: NEOPLASM PROSTATE
  15. TRAZODONE [Concomitant]
     Dates: start: 20080423
  16. HYDROXYZINE PAM [Concomitant]
     Dates: start: 20080403
  17. AMANTADINE [Concomitant]
     Dates: start: 20080403
  18. HALOPERIDOL [Concomitant]
     Dates: start: 20080430

REACTIONS (9)
  - Osteoporosis [Unknown]
  - Multiple fractures [Unknown]
  - Bone loss [Unknown]
  - Arthritis [Unknown]
  - Calcium deficiency [Unknown]
  - Cataract [Unknown]
  - Diabetes mellitus [Unknown]
  - Vitamin D deficiency [Unknown]
  - Depression [Unknown]
